FAERS Safety Report 5717261-9 (Version None)
Quarter: 2008Q2

REPORT INFORMATION
  Report Type: 
  Country: None (occurrence: None)
  Receive Date: 20080423
  Receipt Date: 20080412
  Transmission Date: 20081010
  Serious: Yes (Other)
  Sender: FDA-Public Use
  Company Number: CHPA2008CA06761

PATIENT
  Age: 81 Year
  Sex: Female

DRUGS (11)
  1. NEOCITRAN COLDS + FLU (NCH) (PHENIRAMINE MALEATE, PHENYLEPHRINE HYDROC [Suspect]
     Indication: COUGH
     Dosage: ORAL
     Route: 048
     Dates: start: 20080410, end: 20080412
  2. ATACAND [Suspect]
     Dosage: 1 DF, QD, ORAL
     Route: 048
  3. SYNTHROID [Suspect]
     Dosage: 1 DF, QD, ORAL
     Route: 048
  4. RABEPRAZOLE SODIUM [Concomitant]
     Dosage: 1 DF, BID, ORAL
     Route: 048
  5. SERTRALINE [Suspect]
     Dosage: 1 DF, QD, ORAL
     Route: 048
  6. BROMAZEPAM(BROMAZEPAM) [Suspect]
     Dosage: 1 DF, QD, ORAL
     Route: 048
  7. MOBIC [Suspect]
     Dosage: 1 DF, QD, ORAL
     Route: 048
  8. HYDROCHLORORTHIAZIDE (HYDROCHLOROTHIAZIDE) [Suspect]
     Dosage: 1 DF, QD, ORAL
     Route: 048
  9. PROPRANOLOL [Suspect]
     Dosage: 1 DF, BID, ORAL
     Route: 048
  10. DOCUSATE SODIUM (NCH)(DOCUSATE SODIUM) CAPLET [Suspect]
     Dosage: 1 DF, QD, ORAL
     Route: 048
  11. FERROUS GLUCONATE (NCH)(FERROUS GLUCONATE) [Suspect]
     Dosage: 1 DF, QD, ORAL
     Route: 048

REACTIONS (3)
  - DRUG INTERACTION [None]
  - FALL [None]
  - FEELING ABNORMAL [None]
